FAERS Safety Report 4284222-9 (Version None)
Quarter: 2004Q1

REPORT INFORMATION
  Report Type: 
  Country: None (occurrence: None)
  Receive Date: 20040203
  Receipt Date: 20020802
  Transmission Date: 20041129
  Serious: Yes (Hospitalization)
  Sender: FDA-Public Use
  Company Number: AU-ROCHE-320270

PATIENT
  Age: 34 Year
  Sex: Female
  Weight: 52.5 kg

DRUGS (10)
  1. DACLIZUMAB [Suspect]
     Route: 042
     Dates: start: 20020521, end: 20020521
  2. MYCOPHENOLATE MOFETIL [Suspect]
     Route: 048
     Dates: start: 20020521, end: 20020528
  3. CELLCEPT [Suspect]
     Route: 065
     Dates: start: 20020528
  4. TACROLIMUS [Suspect]
     Route: 065
     Dates: start: 20020528
  5. CICLOSPORIN [Concomitant]
     Dates: end: 20020528
  6. PREDNISOLONE [Concomitant]
     Dates: start: 20020521
  7. RANITIDINE [Concomitant]
     Dates: start: 20020521
  8. FRUSEMIDE [Concomitant]
     Dates: start: 20020523, end: 20020806
  9. RAMIPRIL [Concomitant]
     Dates: start: 20020701
  10. WARFARIN SODIUM [Concomitant]
     Dosage: VARIALBLE DOSE
     Dates: start: 20020826

REACTIONS (3)
  - CYTOMEGALOVIRUS INFECTION [None]
  - PNEUMONIA CYTOMEGALOVIRAL [None]
  - SKIN NODULE [None]
